FAERS Safety Report 11679646 (Version 2)
Quarter: 2015Q4

REPORT INFORMATION
  Report Type: Spontaneous
  Country: US (occurrence: US)
  Receive Date: 20151027
  Receipt Date: 20151104
  Transmission Date: 20160304
  Serious: No
  Sender: FDA-Public Use
  Company Number: US-ELI_LILLY_AND_COMPANY-US201008005821

PATIENT
  Age: 78 Year
  Sex: Female

DRUGS (4)
  1. FORTEO [Suspect]
     Active Substance: TERIPARATIDE
     Indication: OSTEOPOROSIS
     Dosage: 20 UG, DAILY (1/D)
     Route: 065
     Dates: start: 20100811
  2. FORTEO [Suspect]
     Active Substance: TERIPARATIDE
     Dosage: 20 UG, DAILY (1/D)
  3. FORTEO [Suspect]
     Active Substance: TERIPARATIDE
     Dosage: 20 UG, DAILY (1/D)
     Route: 065
  4. FORTEO [Suspect]
     Active Substance: TERIPARATIDE
     Dosage: 20 UG, QD

REACTIONS (12)
  - Abdominal discomfort [Unknown]
  - Tongue discolouration [Unknown]
  - Tongue disorder [Unknown]
  - Glossitis [Unknown]
  - Viral infection [Not Recovered/Not Resolved]
  - Heart rate increased [Unknown]
  - Injection site bruising [Unknown]
  - Glossodynia [Unknown]
  - Tongue discolouration [Unknown]
  - Tongue injury [Unknown]
  - Oral fungal infection [Unknown]
  - Oral discomfort [Unknown]

NARRATIVE: CASE EVENT DATE: 201009
